FAERS Safety Report 21135703 (Version 1)
Quarter: 2022Q3

REPORT INFORMATION
  Report Type: Spontaneous
  Country: CN (occurrence: CN)
  Receive Date: 20220727
  Receipt Date: 20220727
  Transmission Date: 20221027
  Serious: Yes (Other)
  Sender: FDA-Public Use
  Company Number: None

PATIENT
  Age: 47 Year
  Sex: Female
  Weight: 56 kg

DRUGS (4)
  1. CYCLOPHOSPHAMIDE [Suspect]
     Active Substance: CYCLOPHOSPHAMIDE
     Indication: Breast cancer female
     Dosage: 900 MG, QD, CYCLOPHOSPHAMIDE FOR INJECTION (ENDOXAN) 900 MG + 0.9% SODIUM CHLORIDE INJECTION 100 ML
     Route: 041
     Dates: start: 20220618, end: 20220618
  2. SODIUM CHLORIDE [Suspect]
     Active Substance: SODIUM CHLORIDE
     Indication: Medication dilution
     Dosage: 100 ML, QD, CYCLOPHOSPHAMIDE FOR INJECTION (ENDOXAN) 900 MG + 0.9% SODIUM CHLORIDE INJECTION 100ML
     Route: 041
     Dates: start: 20220618, end: 20220618
  3. SODIUM CHLORIDE [Suspect]
     Active Substance: SODIUM CHLORIDE
     Dosage: 50 ML, QD, EPIRUBICIN HYDROCHLORIDE FOR INJECTION (AIDASHENG) 130 MG + 0.9% SODIUM CHLORIDE INJECTIO
     Route: 041
     Dates: start: 20220618, end: 20220618
  4. EPIRUBICIN HYDROCHLORIDE [Suspect]
     Active Substance: EPIRUBICIN HYDROCHLORIDE
     Indication: Breast cancer female
     Dosage: 130 MG, QD, EPIRUBICIN HYDROCHLORIDE FOR INJECTION (AIDASHENG) 130 MG + 0.9% SODIUM CHLORIDE INJECTI
     Route: 041
     Dates: start: 20220618, end: 20220618

REACTIONS (1)
  - Myelosuppression [Recovering/Resolving]

NARRATIVE: CASE EVENT DATE: 20220624
